FAERS Safety Report 9329087 (Version 1)
Quarter: 2013Q2

REPORT INFORMATION
  Report Type: Spontaneous
  Country: US (occurrence: US)
  Receive Date: 20130604
  Receipt Date: 20130604
  Transmission Date: 20140414
  Serious: No
  Sender: FDA-Public Use
  Company Number: US-SANOFI-AVENTIS-2013SA022413

PATIENT
  Age: 65 Year
  Sex: Female

DRUGS (3)
  1. SOLOSTAR [Suspect]
     Dates: start: 2012
  2. LANTUS SOLOSTAR [Suspect]
     Dosage: DOSE:68 UNIT(S)
     Route: 051
     Dates: start: 2012
  3. LANTUS SOLOSTAR [Suspect]
     Dosage: DOSE:62 UNIT(S)
     Route: 051
     Dates: start: 2012

REACTIONS (3)
  - Injection site pain [Unknown]
  - Injection site haemorrhage [Not Recovered/Not Resolved]
  - Blood glucose increased [Unknown]
